FAERS Safety Report 11379028 (Version 1)
Quarter: 2015Q3

REPORT INFORMATION
  Report Type: Spontaneous
  Country: IT (occurrence: None)
  Receive Date: 20150812
  Receipt Date: 20150812
  Transmission Date: 20151125
  Serious: Yes (Hospitalization, Other)
  Sender: FDA-Public Use
  Company Number: 2015RR-101280

PATIENT
  Age: 18 Year
  Sex: Female

DRUGS (2)
  1. SIRDALUD [Suspect]
     Active Substance: TIZANIDINE
     Indication: INTENTIONAL SELF-INJURY
     Route: 048
     Dates: start: 20150619, end: 20150619
  2. PANTOPRAZOLO [Suspect]
     Active Substance: PANTOPRAZOLE SODIUM
     Indication: INTENTIONAL SELF-INJURY
     Route: 048
     Dates: start: 20150619, end: 20150619

REACTIONS (3)
  - Drug abuse [None]
  - Intentional self-injury [None]
  - Somnolence [None]

NARRATIVE: CASE EVENT DATE: 20150619
